FAERS Safety Report 24523840 (Version 1)
Quarter: 2024Q4

REPORT INFORMATION
  Report Type: Spontaneous
  Country: US (occurrence: US)
  Receive Date: 20241018
  Receipt Date: 20241018
  Transmission Date: 20250115
  Serious: No
  Sender: BIOMARIN
  Company Number: US-BIOMARINAP-US-2024-161162

PATIENT

DRUGS (1)
  1. KUVAN [Suspect]
     Active Substance: SAPROPTERIN DIHYDROCHLORIDE
     Indication: Phenylketonuria
     Dosage: 3.75 MILLILITER, QD
     Route: 048
     Dates: start: 202308

REACTIONS (2)
  - Hyperhidrosis [Not Recovered/Not Resolved]
  - Irritability [Not Recovered/Not Resolved]
